FAERS Safety Report 5245743-5 (Version None)
Quarter: 2007Q1

REPORT INFORMATION
  Report Type: 
  Country: None (occurrence: None)
  Receive Date: 20070223
  Receipt Date: 20070220
  Transmission Date: 20070707
  Serious: Yes (Hospitalization)
  Sender: FDA-Public Use
  Company Number: US-MERCK-0612USA01635

PATIENT
  Age: 58 Year
  Sex: Male

DRUGS (13)
  1. JANUVIA [Suspect]
     Indication: DIABETES MELLITUS NON-INSULIN-DEPENDENT
     Route: 048
     Dates: start: 20061113, end: 20061127
  2. NIASPAN ER [Concomitant]
     Route: 048
  3. ZOCOR [Concomitant]
     Route: 048
  4. ACCUPRIL [Concomitant]
     Route: 065
  5. KLOR-CON [Concomitant]
     Route: 065
  6. LOPRESSOR [Concomitant]
     Route: 065
  7. ZAROXOLYN [Concomitant]
     Route: 065
  8. ASPIRIN [Concomitant]
     Route: 065
  9. NOVOLIN 70/30 [Concomitant]
     Route: 058
  10. LANTUS [Concomitant]
     Route: 058
  11. ALDACTONE [Concomitant]
     Route: 065
     Dates: start: 20061101
  12. BUMEX [Concomitant]
     Route: 065
  13. NORCO [Concomitant]
     Route: 065

REACTIONS (2)
  - HEPATIC CIRRHOSIS [None]
  - HEPATIC ENCEPHALOPATHY [None]
